FAERS Safety Report 9259920 (Version 1)
Quarter: 2013Q2

REPORT INFORMATION
  Report Type: Report from Study
  Country: US (occurrence: US)
  Receive Date: 20130429
  Receipt Date: 20130429
  Transmission Date: 20140414
  Serious: Yes (Other)
  Sender: FDA-Public Use
  Company Number: US-ROCHE-1214855

PATIENT
  Age: 71 Year
  Sex: Female

DRUGS (5)
  1. RITUXIMAB [Suspect]
     Indication: PRODUCT USED FOR UNKNOWN INDICATION
     Route: 065
     Dates: start: 20120919
  2. BLINDED SAXAGLIPTIN [Suspect]
     Indication: TYPE 2 DIABETES MELLITUS
     Dosage: LAST DOSE OF BLINDED SAZAGLIPTIN WAS RECIEVED ON 30/JAN/2013.
     Route: 065
     Dates: start: 20100719
  3. GLIMEPIRIDE [Suspect]
     Indication: TYPE 2 DIABETES MELLITUS
     Route: 065
     Dates: start: 20120919
  4. METFORMIN [Suspect]
     Indication: TYPE 2 DIABETES MELLITUS
     Route: 065
  5. ASPIRIN [Concomitant]

REACTIONS (1)
  - B-cell lymphoma [Unknown]
